FAERS Safety Report 10055586 (Version 2)
Quarter: 2014Q2

REPORT INFORMATION
  Report Type: Spontaneous
  Country: US (occurrence: US)
  Receive Date: 20140403
  Receipt Date: 20140522
  Transmission Date: 20141212
  Serious: Yes (Hospitalization)
  Sender: FDA-Public Use
  Company Number: US-AMGEN-USASP2014023122

PATIENT
  Age: 43 Year
  Sex: Female
  Weight: 151.47 kg

DRUGS (8)
  1. ENBREL [Suspect]
     Indication: RHEUMATOID ARTHRITIS
     Dosage: 50 MG, QWK
     Route: 058
     Dates: start: 201306
  2. ENBREL [Suspect]
     Indication: PSORIATIC ARTHROPATHY
  3. ENBREL [Suspect]
     Indication: PSORIASIS
  4. HYDROCODONE/APAP [Concomitant]
     Indication: PAIN
     Dosage: UNK UNK, AS NECESSARY
     Route: 048
  5. SYNTHROID [Concomitant]
     Indication: HYPOTHYROIDISM
     Dosage: 75 MCG, QD
     Route: 048
  6. MOBIC [Concomitant]
     Indication: PSORIATIC ARTHROPATHY
     Dosage: 15 MG, QD
     Route: 048
  7. ZANAFLEX [Concomitant]
     Indication: MUSCLE SPASMS
     Dosage: 4 MG, QD
     Route: 048
  8. CALCIUM WITH VITAMIN D             /00944201/ [Concomitant]
     Dosage: UNK UNK, QD
     Route: 048

REACTIONS (4)
  - Arthralgia [Recovered/Resolved]
  - Synovial cyst [Unknown]
  - Back pain [Unknown]
  - Pain in extremity [Recovered/Resolved]
